FAERS Safety Report 7198055-7 (Version None)
Quarter: 2010Q4

REPORT INFORMATION
  Report Type: 
  Country: None (occurrence: None)
  Receive Date: 20101227
  Receipt Date: 20101216
  Transmission Date: 20110411
  Serious: Yes (Hospitalization)
  Sender: FDA-Public Use
  Company Number: US-ASTRAZENECA-2010SE10128

PATIENT
  Age: 74 Year
  Sex: Male

DRUGS (2)
  1. CRESTOR [Suspect]
     Indication: HYPERCHOLESTEROLAEMIA
     Route: 048
     Dates: start: 20090101, end: 20090101
  2. CRESTOR [Suspect]
     Route: 048
     Dates: start: 20100101

REACTIONS (4)
  - ASTHENIA [None]
  - BACK PAIN [None]
  - RHABDOMYOLYSIS [None]
  - STENT PLACEMENT [None]
